FAERS Safety Report 7912952-3 (Version None)
Quarter: 2011Q4

REPORT INFORMATION
  Report Type: 
  Country: None (occurrence: None)
  Receive Date: 20111114
  Receipt Date: 20111107
  Transmission Date: 20120403
  Serious: Yes (Other)
  Sender: FDA-Public Use
  Company Number: US-GILEAD-2011-0046416

PATIENT
  Sex: Female

DRUGS (9)
  1. VASOTEC [Concomitant]
  2. ASPIRIN [Concomitant]
  3. RANEXA [Suspect]
     Indication: ANGINA PECTORIS
     Dosage: 500 MG, BID
     Route: 048
     Dates: start: 20080101
  4. PLAVIX [Concomitant]
  5. SYNTHROID [Suspect]
     Dosage: UNK
     Dates: start: 20111001
  6. XANAX [Concomitant]
  7. ZOCOR [Concomitant]
  8. PREMARIN [Concomitant]
  9. TENORMIN [Concomitant]

REACTIONS (1)
  - ANGINA PECTORIS [None]
